FAERS Safety Report 18242065 (Version 2)
Quarter: 2020Q4

REPORT INFORMATION
  Report Type: Spontaneous
  Country: CA (occurrence: CA)
  Receive Date: 20200908
  Receipt Date: 20201021
  Transmission Date: 20210113
  Serious: Yes (Life-Threatening, Other)
  Sender: FDA-Public Use
  Company Number: CA-TEVA-2020-CA-1824974

PATIENT
  Age: 14 Year
  Sex: Female
  Weight: 93 kg

DRUGS (18)
  1. NORETHINDRONE. [Concomitant]
     Active Substance: NORETHINDRONE
  2. RANITIDINE. [Concomitant]
     Active Substance: RANITIDINE
  3. SANDOZ POSACONAZOLE [Concomitant]
  4. DEXAMETHASONE. [Concomitant]
     Active Substance: DEXAMETHASONE
  5. LEUPROLIDE [Concomitant]
     Active Substance: LEUPROLIDE
  6. ACETAMINOPHEN. [Concomitant]
     Active Substance: ACETAMINOPHEN
  7. HEPARIN CALCIUM [Concomitant]
     Active Substance: HEPARIN CALCIUM
  8. OLANZAPINE. [Concomitant]
     Active Substance: OLANZAPINE
  9. PENTAMIDINE ISETHIONATE INJ 300MG /VIAL BP [Concomitant]
  10. AMITRIPTYLINE [Concomitant]
     Active Substance: AMITRIPTYLINE
  11. POTASSIUM [Concomitant]
     Active Substance: POTASSIUM
  12. ENOXAPARIN [Concomitant]
     Active Substance: ENOXAPARIN
  13. MORPHINE [Concomitant]
     Active Substance: MORPHINE
  14. CYTARABINE INJECTION [Suspect]
     Active Substance: CYTARABINE
     Indication: ACUTE LYMPHOCYTIC LEUKAEMIA RECURRENT
     Dosage: 12400 MILLIGRAM DAILY;
     Route: 042
  15. ALTEPLASE. [Concomitant]
     Active Substance: ALTEPLASE
  16. ONDANSETRON [Concomitant]
     Active Substance: ONDANSETRON
  17. POLYETHYLENE GLYCOL [Concomitant]
     Active Substance: POLYETHYLENE GLYCOLS
  18. METHOTREXATE. [Suspect]
     Active Substance: METHOTREXATE
     Indication: ACUTE LYMPHOCYTIC LEUKAEMIA RECURRENT
     Route: 037

REACTIONS (2)
  - Transfusion [Recovered/Resolved]
  - Aplastic anaemia [Recovered/Resolved]
